FAERS Safety Report 6653177-1 (Version None)
Quarter: 2010Q1

REPORT INFORMATION
  Report Type: 
  Country: None (occurrence: None)
  Receive Date: 20100326
  Receipt Date: 20100315
  Transmission Date: 20100710
  Serious: Yes (Hospitalization)
  Sender: FDA-Public Use
  Company Number: US-CEPHALON-2010001490

PATIENT
  Sex: Male

DRUGS (2)
  1. PROVIGIL [Suspect]
     Indication: SOMNOLENCE
     Route: 048
  2. CLOZARIL [Concomitant]

REACTIONS (2)
  - DRUG INEFFECTIVE FOR UNAPPROVED INDICATION [None]
  - UNEVALUABLE EVENT [None]
